FAERS Safety Report 19289163 (Version 2)
Quarter: 2021Q2

REPORT INFORMATION
  Report Type: Report from Study
  Country: BR (occurrence: BR)
  Receive Date: 20210522
  Receipt Date: 20210526
  Transmission Date: 20210717
  Serious: No
  Sender: FDA-Public Use
  Company Number: NVSC2020BR142552

PATIENT
  Age: 28 Year
  Sex: Male

DRUGS (3)
  1. COSENTYX [Suspect]
     Active Substance: SECUKINUMAB
     Dosage: UNK
     Route: 065
     Dates: start: 20200418
  2. COSENTYX [Suspect]
     Active Substance: SECUKINUMAB
     Indication: ANKYLOSING SPONDYLITIS
     Dosage: 150 MG
     Route: 065
     Dates: start: 20190305
  3. COSENTYX [Suspect]
     Active Substance: SECUKINUMAB
     Dosage: 150 MG
     Route: 065

REACTIONS (13)
  - Parosmia [Recovering/Resolving]
  - Weight increased [Not Recovered/Not Resolved]
  - Feeling abnormal [Recovering/Resolving]
  - Cough [Recovered/Resolved with Sequelae]
  - Throat irritation [Not Recovered/Not Resolved]
  - Anxiety [Unknown]
  - Cough [Recovered/Resolved]
  - Allergic cough [Recovering/Resolving]
  - Secretion discharge [Recovering/Resolving]
  - Application site discomfort [Unknown]
  - Application site discolouration [Not Recovered/Not Resolved]
  - Application site oedema [Recovered/Resolved]
  - Reflux laryngitis [Unknown]

NARRATIVE: CASE EVENT DATE: 202003
